FAERS Safety Report 14771828 (Version 1)
Quarter: 2018Q2

REPORT INFORMATION
  Report Type: Spontaneous
  Country: CA (occurrence: CA)
  Receive Date: 20180417
  Receipt Date: 20180417
  Transmission Date: 20180711
  Serious: Yes (Hospitalization, Other)
  Sender: FDA-Public Use
  Company Number: CA-ACTELION-A-US2018-170437

PATIENT
  Sex: Female

DRUGS (4)
  1. CARIPUL [Suspect]
     Active Substance: EPOPROSTENOL
     Indication: PULMONARY ARTERIAL HYPERTENSION
     Dosage: 36 NG/KG, PER MIN
     Route: 042
     Dates: start: 20160203
  2. VENOFER [Interacting]
     Active Substance: IRON SUCROSE
     Indication: IRON DEFICIENCY
     Dosage: 300 MG IN 100 CC NS
     Route: 042
     Dates: start: 20180312
  3. FUROSEMIDE. [Concomitant]
     Active Substance: FUROSEMIDE
     Dosage: 10-20 MG ALT DAYS
     Dates: start: 201602
  4. EURO K 975 [Concomitant]

REACTIONS (4)
  - Infusion site rash [Recovered/Resolved]
  - Hypersensitivity [Recovered/Resolved]
  - Infusion site pruritus [Recovered/Resolved]
  - Drug interaction [Unknown]
